FAERS Safety Report 4627381-8 (Version None)
Quarter: 2005Q2

REPORT INFORMATION
  Report Type: 
  Country: None (occurrence: None)
  Receive Date: 20050405
  Receipt Date: 20050318
  Transmission Date: 20051028
  Serious: Yes (Death, Hospitalization, Other)
  Sender: FDA-Public Use
  Company Number: 10613

PATIENT
  Age: 68 Year
  Sex: Male
  Weight: 87.9978 kg

DRUGS (3)
  1. CYTARABINE [Suspect]
     Indication: ACUTE MYELOID LEUKAEMIA
     Dosage: 100 MG/M2 DAILY IV
     Route: 042
     Dates: start: 20050205, end: 20050210
  2. DAUNORUBICIN HCL [Suspect]
     Indication: ACUTE MYELOID LEUKAEMIA
     Dosage: 45 MG/M2 DAILY IV
     Route: 042
     Dates: start: 20050205, end: 20050207
  3. MDR-INTRAVENOUS FORMULATION [Suspect]
     Indication: ACUTE MYELOID LEUKAEMIA
     Dosage: 550 MG DAILY IV
     Route: 042
     Dates: start: 20050205, end: 20050207

REACTIONS (8)
  - CONFUSIONAL STATE [None]
  - COORDINATION ABNORMAL [None]
  - DYSPNOEA [None]
  - FEBRILE NEUTROPENIA [None]
  - HYPOTENSION [None]
  - RESPIRATORY DISTRESS [None]
  - SEPTIC SHOCK [None]
  - URINARY INCONTINENCE [None]
